FAERS Safety Report 12161622 (Version 3)
Quarter: 2016Q2

REPORT INFORMATION
  Report Type: Spontaneous
  Country: US (occurrence: US)
  Receive Date: 20160309
  Receipt Date: 20160425
  Transmission Date: 20160815
  Serious: Yes (Death)
  Sender: FDA-Public Use
  Company Number: US-ROCHE-1660108

PATIENT
  Sex: Male

DRUGS (5)
  1. SINGULAIR [Concomitant]
     Active Substance: MONTELUKAST SODIUM
  2. VITAMIN E [Concomitant]
     Active Substance: .ALPHA.-TOCOPHEROL
  3. PRILOSEC [Concomitant]
     Active Substance: OMEPRAZOLE MAGNESIUM
  4. IPRATROPIUM [Concomitant]
     Active Substance: IPRATROPIUM
  5. ESBRIET [Suspect]
     Active Substance: PIRFENIDONE
     Indication: IDIOPATHIC PULMONARY FIBROSIS
     Route: 048
     Dates: start: 20151001

REACTIONS (11)
  - Hypoxia [Fatal]
  - Nasopharyngitis [Unknown]
  - Feeling abnormal [Unknown]
  - Respiratory failure [Fatal]
  - Pneumonia aspiration [Fatal]
  - Diarrhoea [Unknown]
  - Pain [Unknown]
  - Rhinorrhoea [Unknown]
  - Empyema [Fatal]
  - Flatulence [Unknown]
  - Drug dose omission [Unknown]
